FAERS Safety Report 12844195 (Version 1)
Quarter: 2016Q4

REPORT INFORMATION
  Report Type: Spontaneous
  Country: US (occurrence: US)
  Receive Date: 20161013
  Receipt Date: 20161013
  Transmission Date: 20170207
  Serious: No
  Sender: FDA-Public Use
  Company Number: US-ROCHE-1703327

PATIENT
  Age: 75 Year
  Sex: Female

DRUGS (1)
  1. ZELBORAF [Suspect]
     Active Substance: VEMURAFENIB
     Indication: PRODUCT USED FOR UNKNOWN INDICATION
     Dosage: 4 TABLETS BY MOUTH EVERY 12 HOURS
     Route: 048
     Dates: start: 20151220

REACTIONS (1)
  - Rash [Not Recovered/Not Resolved]

NARRATIVE: CASE EVENT DATE: 20151220
